FAERS Safety Report 6856007-8 (Version None)
Quarter: 2010Q3

REPORT INFORMATION
  Report Type: 
  Country: None (occurrence: None)
  Receive Date: 20100719
  Receipt Date: 20100712
  Transmission Date: 20110219
  Serious: Yes (Other)
  Sender: FDA-Public Use
  Company Number: GB-BRISTOL-MYERS SQUIBB COMPANY-15191398

PATIENT
  Age: 5 Decade
  Sex: Female

DRUGS (4)
  1. ABILIFY [Suspect]
  2. ASPIRIN [Concomitant]
  3. CITALOPRAM HYDROBROMIDE [Concomitant]
  4. DILTIAZEM HCL [Concomitant]

REACTIONS (1)
  - NEOPLASM MALIGNANT [None]
